FAERS Safety Report 21564282 (Version 2)
Quarter: 2022Q4

REPORT INFORMATION
  Report Type: Spontaneous
  Country: US (occurrence: US)
  Receive Date: 20221108
  Receipt Date: 20221116
  Transmission Date: 20230113
  Serious: No
  Sender: FDA-Public Use
  Company Number: US-BIOGEN-2022BI01167440

PATIENT
  Age: 41 Year
  Sex: Female

DRUGS (1)
  1. VUMERITY [Suspect]
     Active Substance: DIROXIMEL FUMARATE
     Indication: Multiple sclerosis
     Route: 050
     Dates: start: 20221101

REACTIONS (6)
  - Dizziness [Unknown]
  - Panic attack [Unknown]
  - Somnolence [Unknown]
  - Decreased appetite [Unknown]
  - Headache [Recovered/Resolved]
  - Flushing [Unknown]

NARRATIVE: CASE EVENT DATE: 20221101
